FAERS Safety Report 10194452 (Version 1)
Quarter: 2014Q2

REPORT INFORMATION
  Report Type: Report from Study
  Country: US (occurrence: US)
  Receive Date: 20140526
  Receipt Date: 20140526
  Transmission Date: 20141212
  Serious: Yes (Other)
  Sender: FDA-Public Use
  Company Number: US-ROCHE-1405600

PATIENT
  Sex: Male
  Weight: 25.9 kg

DRUGS (5)
  1. NUTROPIN AQ [Suspect]
     Indication: GROWTH HORMONE DEFICIENCY
     Route: 058
  2. SYMBICORT [Concomitant]
     Route: 065
  3. SINGULAIR [Concomitant]
     Route: 065
  4. ZYRTEC [Concomitant]
     Route: 065
  5. ALBUTEROL INHALER [Concomitant]
     Dosage: INHALE AS NEEDED
     Route: 065

REACTIONS (4)
  - Migraine [Unknown]
  - Sinusitis [Unknown]
  - Thyroxine increased [Unknown]
  - Drug dose omission [Unknown]
